FAERS Safety Report 18485149 (Version 1)
Quarter: 2020Q4

REPORT INFORMATION
  Report Type: Spontaneous
  Country: US (occurrence: US)
  Receive Date: 20201110
  Receipt Date: 20201110
  Transmission Date: 20210114
  Serious: No
  Sender: FDA-Public Use
  Company Number: US-SA-2020SA315926

PATIENT

DRUGS (6)
  1. LANTUS SOLOSTAR [Suspect]
     Active Substance: INSULIN GLARGINE
  2. ADMELOG [Suspect]
     Active Substance: INSULIN LISPRO
  3. KEVZARA [Suspect]
     Active Substance: SARILUMAB
  4. TOUJEO [Suspect]
     Active Substance: INSULIN GLARGINE
  5. APIDRA [Suspect]
     Active Substance: INSULIN GLULISINE
  6. LANTUS [Suspect]
     Active Substance: INSULIN GLARGINE

REACTIONS (1)
  - Product storage error [Unknown]

NARRATIVE: CASE EVENT DATE: 20201108
